FAERS Safety Report 4780933-7 (Version None)
Quarter: 2005Q3

REPORT INFORMATION
  Report Type: 
  Country: None (occurrence: None)
  Receive Date: 20050927
  Receipt Date: 20050927
  Transmission Date: 20060218
  Serious: Yes (Hospitalization)
  Sender: FDA-Public Use
  Company Number: None

PATIENT
  Age: 54 Year
  Sex: Male
  Weight: 86.637 kg

DRUGS (10)
  1. TRIMETHOPRIM-SULFAMETHOXAZOLE [Suspect]
     Indication: URINARY TRACT INFECTION STAPHYLOCOCCAL
     Dosage: ONLY RECEIVED ONE DOSE PO
     Route: 048
     Dates: start: 20050914, end: 20050914
  2. ABACAVIR/LAMIVUDINE -EPZICOM- [Concomitant]
  3. ATAZANAVIR [Concomitant]
  4. FLUOXETINE [Concomitant]
  5. HALOPERIDOL [Concomitant]
  6. HYDROCHLOROTHIAZIDE [Concomitant]
  7. LISINOPRIL [Concomitant]
  8. LORAZEPAM [Concomitant]
  9. RITONAVIR [Concomitant]
  10. TRAZODONE [Concomitant]

REACTIONS (4)
  - BLISTER [None]
  - DRUG ERUPTION [None]
  - RASH [None]
  - RASH PUSTULAR [None]
